FAERS Safety Report 10378220 (Version 1)
Quarter: 2014Q3

REPORT INFORMATION
  Report Type: Spontaneous
  Country: GB (occurrence: GB)
  Receive Date: 20140812
  Receipt Date: 20140812
  Transmission Date: 20150326
  Serious: Yes (Hospitalization, Other)
  Sender: FDA-Public Use
  Company Number: GB-TEVA-499094ISR

PATIENT
  Age: 91 Year
  Sex: Female

DRUGS (14)
  1. ASPIRIN. [Concomitant]
     Active Substance: ASPIRIN
  2. PARACETAMOL [Concomitant]
     Active Substance: ACETAMINOPHEN
  3. SOLIFENACIN [Suspect]
     Active Substance: SOLIFENACIN
     Indication: PRODUCT USED FOR UNKNOWN INDICATION
     Dosage: 5 MILLIGRAM DAILY;
     Route: 048
     Dates: end: 20140722
  4. CODEINE [Concomitant]
     Active Substance: CODEINE
  5. CYCLIZINE [Concomitant]
     Active Substance: CYCLIZINE
  6. SPIRONOLACTONE. [Suspect]
     Active Substance: SPIRONOLACTONE
     Indication: PRODUCT USED FOR UNKNOWN INDICATION
     Dosage: 12.5 MILLIGRAM DAILY;
     Route: 048
     Dates: start: 20140703, end: 20140722
  7. PERINDOPRIL [Suspect]
     Active Substance: PERINDOPRIL
     Indication: PRODUCT USED FOR UNKNOWN INDICATION
     Dosage: 8 MILLIGRAM DAILY;
     Route: 048
     Dates: end: 20140722
  8. TRIMETHOPRIM. [Suspect]
     Active Substance: TRIMETHOPRIM
     Indication: URINARY TRACT INFECTION
     Dosage: 400 MILLIGRAM DAILY;
     Route: 048
     Dates: start: 20140717, end: 20140722
  9. CLOPIDOGREL [Concomitant]
     Active Substance: CLOPIDOGREL BISULFATE
  10. COLECALCIFEROL [Concomitant]
     Active Substance: CHOLECALCIFEROL
  11. DOCUSATE [Concomitant]
     Active Substance: DOCUSATE
  12. BISOPROLOL [Concomitant]
     Active Substance: BISOPROLOL
  13. SENNA [Concomitant]
     Active Substance: SENNA LEAF\SENNOSIDES\SENNOSIDES A AND B
  14. ALLOPURINOL. [Concomitant]
     Active Substance: ALLOPURINOL

REACTIONS (3)
  - Hyponatraemia [Not Recovered/Not Resolved]
  - Renal failure acute [Not Recovered/Not Resolved]
  - Hyperkalaemia [Not Recovered/Not Resolved]

NARRATIVE: CASE EVENT DATE: 20140722
